FAERS Safety Report 9068308 (Version 1)
Quarter: 2013Q1

REPORT INFORMATION
  Report Type: Spontaneous
  Country: US (occurrence: US)
  Receive Date: 20130206
  Receipt Date: 20130206
  Transmission Date: 20140127
  Serious: Yes (Other)
  Sender: FDA-Public Use
  Company Number: US-NOVEN-13US006085

PATIENT
  Age: 45 None
  Sex: Female
  Weight: 88 kg

DRUGS (1)
  1. MINIVELLE [Suspect]
     Indication: PRODUCT USED FOR UNKNOWN INDICATION
     Dosage: 0.1 MG, UNK
     Route: 062
     Dates: start: 20130114, end: 20130122

REACTIONS (5)
  - Application site rash [Recovering/Resolving]
  - Application site burn [Recovering/Resolving]
  - Application site pain [Recovering/Resolving]
  - Application site vesicles [Recovering/Resolving]
  - Application site scab [Recovering/Resolving]
